FAERS Safety Report 15689235 (Version 1)
Quarter: 2018Q4

REPORT INFORMATION
  Report Type: Spontaneous
  Country: US (occurrence: US)
  Receive Date: 20181121
  Receipt Date: 20181121
  Transmission Date: 20190205
  Serious: Yes (Hospitalization, Disabling)
  Sender: FDA-Public Use
  Company Number: None

PATIENT
  Age: 81 Year
  Sex: Female
  Weight: 72.12 kg

DRUGS (17)
  1. FLINTSTONE VITAMINS (CHILDREN^S) [Concomitant]
  2. CAIRE OXYGEN CONCENTRATOR [Concomitant]
  3. CARVEDILOL. [Concomitant]
     Active Substance: CARVEDILOL
  4. VITAMIN C [Concomitant]
     Active Substance: ASCORBIC ACID
  5. PROBIOTIC [Concomitant]
     Active Substance: PROBIOTICS NOS
  6. FLAXSEED [Concomitant]
     Active Substance: FLAX SEED
  7. HYDRALAZINE [Concomitant]
     Active Substance: HYDRALAZINE HYDROCHLORIDE
  8. MULTI VITAMIN [Concomitant]
     Active Substance: VITAMINS
  9. LOSARTAN POTASSIUM 50 MG TABLET [Suspect]
     Active Substance: LOSARTAN POTASSIUM
     Indication: BLOOD PRESSURE SYSTOLIC INCREASED
     Route: 048
     Dates: start: 20170914
  10. FLUNISOLIDE SPRAY [Concomitant]
     Active Substance: FLUNISOLIDE
  11. KELP [Concomitant]
     Active Substance: KELP
  12. AMLODIPINE [Concomitant]
     Active Substance: AMLODIPINE BESYLATE
  13. IRON [Concomitant]
     Active Substance: IRON
  14. ATORVASTATIN [Concomitant]
     Active Substance: ATORVASTATIN
  15. BABY ASPIRIN [Concomitant]
     Active Substance: ASPIRIN
  16. HYDRALAZINE [Concomitant]
     Active Substance: HYDRALAZINE HYDROCHLORIDE
  17. LUTEIN [Concomitant]
     Active Substance: LUTEIN

REACTIONS (7)
  - Pulmonary function test abnormal [None]
  - Chest pain [None]
  - Post procedural complication [None]
  - Dyspnoea [None]
  - Nerve injury [None]
  - Coronary artery bypass [None]
  - Blood pressure systolic increased [None]

NARRATIVE: CASE EVENT DATE: 20171210
